FAERS Safety Report 5060259-7 (Version None)
Quarter: 2006Q3

REPORT INFORMATION
  Report Type: 
  Country: None (occurrence: None)
  Receive Date: 20060724
  Receipt Date: 20050314
  Transmission Date: 20061208
  Serious: Yes (Hospitalization, Disabling, Other)
  Sender: FDA-Public Use
  Company Number: US-MERCK-0503USA02312

PATIENT
  Age: 81 Year
  Sex: Female
  Weight: 84 kg

DRUGS (9)
  1. FOSAMAX [Suspect]
     Indication: OSTEOPOROSIS
     Route: 048
     Dates: start: 20001101, end: 20050301
  2. MIACALCIN [Concomitant]
     Route: 055
  3. ATENOLOL [Concomitant]
     Indication: HYPERTENSION
     Route: 048
  4. EVISTA [Concomitant]
     Indication: OSTEOPOROSIS
     Route: 048
  5. ECOTRIN [Concomitant]
     Route: 048
  6. FOLTX [Concomitant]
     Route: 065
  7. VASOTEC [Concomitant]
     Indication: HYPERTENSION
     Route: 048
  8. LASIX [Concomitant]
     Indication: HYPERTENSION
     Route: 048
  9. MOBIC [Concomitant]
     Indication: ARTHRITIS
     Route: 048

REACTIONS (3)
  - DRUG HYPERSENSITIVITY [None]
  - EXOSTOSIS [None]
  - PAIN IN JAW [None]
